FAERS Safety Report 9586385 (Version 2)
Quarter: 2014Q2

REPORT INFORMATION
  Report Type: Spontaneous
  Country: US (occurrence: US)
  Receive Date: 20131003
  Receipt Date: 20140617
  Transmission Date: 20141212
  Serious: No
  Sender: FDA-Public Use
  Company Number: US-BAYER-2013-117019

PATIENT
  Age: 24 Year
  Sex: Female

DRUGS (2)
  1. MIRENA [Suspect]
     Indication: ENDOMETRIOSIS
     Dosage: 20 MCG/24HR, CONT
     Route: 015
     Dates: start: 200910
  2. MIRENA [Suspect]
     Indication: MENORRHAGIA

REACTIONS (6)
  - Menstruation delayed [Not Recovered/Not Resolved]
  - Pain [None]
  - Nausea [None]
  - Dizziness [None]
  - Mood swings [None]
  - Hypomenorrhoea [None]
